FAERS Safety Report 9033198 (Version 2)
Quarter: 2013Q2

REPORT INFORMATION
  Report Type: Spontaneous
  Country: US (occurrence: US)
  Receive Date: 20130128
  Receipt Date: 20130528
  Transmission Date: 20140414
  Serious: Yes (Other)
  Sender: FDA-Public Use
  Company Number: US-ASTRAZENECA-2001UW12338

PATIENT
  Age: 75 Year
  Sex: Male
  Weight: 76.2 kg

DRUGS (3)
  1. NEXIUM [Suspect]
     Indication: GASTROOESOPHAGEAL REFLUX DISEASE
     Route: 048
  2. NEXIUM [Suspect]
     Indication: DYSPEPSIA
     Route: 048
  3. XANAX [Concomitant]

REACTIONS (3)
  - Atrial fibrillation [Unknown]
  - Faeces hard [Unknown]
  - Parkinson^s disease [Unknown]
